FAERS Safety Report 7545407-9 (Version None)
Quarter: 2011Q2

REPORT INFORMATION
  Report Type: 
  Country: None (occurrence: None)
  Receive Date: 20110613
  Receipt Date: 20110613
  Transmission Date: 20111010
  Serious: Yes (Death)
  Sender: FDA-Public Use
  Company Number: None

PATIENT
  Age: 64 Year
  Sex: Female

DRUGS (4)
  1. NORTRIPTYLINE HCL [Concomitant]
  2. POTASSIUM CHLORIDE [Concomitant]
  3. ONDANSETRON [Concomitant]
  4. REVLIMID [Suspect]
     Indication: NON-HODGKIN'S LYMPHOMA
     Dosage: REVLIMID 10 MG DAILY ORALLY
     Route: 048
     Dates: start: 20100901, end: 20110101

REACTIONS (6)
  - URINE ANALYSIS ABNORMAL [None]
  - PANCYTOPENIA [None]
  - TUMOUR INVASION [None]
  - HYPOTENSION [None]
  - FEBRILE NEUTROPENIA [None]
  - BACK PAIN [None]
